FAERS Safety Report 14588330 (Version 1)
Quarter: 2018Q1

REPORT INFORMATION
  Report Type: Spontaneous
  Country: US (occurrence: US)
  Receive Date: 20180301
  Receipt Date: 20180301
  Transmission Date: 20180509
  Serious: Yes (Disabling, Other)
  Sender: FDA-Public Use
  Company Number: US-REGENERON PHARMACEUTICALS, INC.-2018-15791

PATIENT

DRUGS (2)
  1. EYLEA [Suspect]
     Active Substance: AFLIBERCEPT
     Indication: RETINAL VEIN OCCLUSION
     Dosage: 3.0 MG, UNK, OS
  2. EYLEA [Suspect]
     Active Substance: AFLIBERCEPT
     Dosage: 3.0 MG, UNK, OS, LAST DOSE
     Dates: start: 20180110, end: 20180110

REACTIONS (4)
  - Blindness unilateral [Unknown]
  - Eye infection [Unknown]
  - Eye inflammation [Unknown]
  - Incorrect dose administered [Unknown]

NARRATIVE: CASE EVENT DATE: 20180110
